FAERS Safety Report 18342996 (Version 1)
Quarter: 2020Q4

REPORT INFORMATION
  Report Type: Spontaneous
  Country: US (occurrence: US)
  Receive Date: 20201005
  Receipt Date: 20201005
  Transmission Date: 20210113
  Serious: No
  Sender: FDA-Public Use
  Company Number: US-AUROBINDO-AUR-APL-2019-062391

PATIENT
  Age: 64 Year
  Sex: Female

DRUGS (1)
  1. SUMATRIPTAN TABLETS 100MG [Suspect]
     Active Substance: SUMATRIPTAN
     Indication: MIGRAINE
     Dosage: UNK
     Route: 065

REACTIONS (8)
  - Neck pain [Unknown]
  - Drug ineffective [Unknown]
  - Asthenia [Unknown]
  - Abdominal pain upper [Unknown]
  - Panic attack [Unknown]
  - Myalgia [Unknown]
  - Dyspepsia [Unknown]
  - Aggression [Unknown]
